FAERS Safety Report 19610446 (Version 1)
Quarter: 2021Q3

REPORT INFORMATION
  Report Type: Spontaneous
  Country: US (occurrence: US)
  Receive Date: 20210726
  Receipt Date: 20210726
  Transmission Date: 20211014
  Serious: No
  Sender: FDA-Public Use
  Company Number: US-PFIZER INC-2021659411

PATIENT

DRUGS (1)
  1. NIVESTYM [Suspect]
     Active Substance: FILGRASTIM-AAFI
     Dates: start: 20210318

REACTIONS (3)
  - Eye swelling [Unknown]
  - Pyrexia [Unknown]
  - Dyspnoea [Unknown]
